FAERS Safety Report 5283525-9 (Version None)
Quarter: 2007Q1

REPORT INFORMATION
  Report Type: 
  Country: None (occurrence: None)
  Receive Date: 20070328
  Receipt Date: 20070328
  Transmission Date: 20070707
  Serious: Yes (Other)
  Sender: FDA-Public Use
  Company Number: None

PATIENT
  Age: 75 Year
  Sex: Male
  Weight: 87.1 kg

DRUGS (6)
  1. TERAZOSIN HCL [Suspect]
  2. LISINOPRIL [Concomitant]
  3. COUMADIN [Concomitant]
  4. CELECOXIB [Concomitant]
  5. METOPROLOL TARTRATE [Concomitant]
  6. LISINOPRIL [Concomitant]

REACTIONS (1)
  - DIZZINESS [None]
